FAERS Safety Report 8464866-0 (Version None)
Quarter: 2012Q2

REPORT INFORMATION
  Report Type: 
  Country: None (occurrence: None)
  Receive Date: 20120626
  Receipt Date: 20120613
  Transmission Date: 20120825
  Serious: Yes (Hospitalization)
  Sender: FDA-Public Use
  Company Number: US-ELI_LILLY_AND_COMPANY-US201206005234

PATIENT
  Age: 41 Year
  Sex: Female

DRUGS (4)
  1. HUMULIN N [Suspect]
     Indication: DIABETES MELLITUS
     Dosage: 40 U, QD
     Dates: start: 20120608
  2. HUMULIN N [Suspect]
     Dosage: 46 U, QD
  3. HUMALOG [Suspect]
     Indication: DIABETES MELLITUS
     Dosage: 20 U, QD
     Dates: start: 20120608
  4. NOVOLOG [Concomitant]

REACTIONS (10)
  - LIMB INJURY [None]
  - EXCORIATION [None]
  - BLOOD GLUCOSE INCREASED [None]
  - MATERNAL EXPOSURE DURING PREGNANCY [None]
  - HOSPITALISATION [None]
  - POLYHYDRAMNIOS [None]
  - CONTUSION [None]
  - FALL [None]
  - JOINT INJURY [None]
  - GLYCOSYLATED HAEMOGLOBIN INCREASED [None]
